FAERS Safety Report 7470052-3 (Version None)
Quarter: 2011Q2

REPORT INFORMATION
  Report Type: 
  Country: None (occurrence: None)
  Receive Date: 20110510
  Receipt Date: 20110509
  Transmission Date: 20111010
  Serious: Yes (Other)
  Sender: FDA-Public Use
  Company Number: VE-PFIZER INC-2011088907

PATIENT
  Age: 46 Year
  Sex: Female

DRUGS (8)
  1. ZOLOFT [Suspect]
     Indication: TRIGEMINAL NEURALGIA
     Dosage: 50 MG, 1X/DAY
     Route: 048
     Dates: start: 20101101, end: 20110401
  2. SIRDALUD [Concomitant]
     Indication: TRIGEMINAL NEURALGIA
     Dosage: UNK
     Route: 048
  3. DICLOFENAC SODIUM [Concomitant]
     Indication: TRIGEMINAL NEURALGIA
     Dosage: UNK
     Route: 048
  4. PANTOP [Concomitant]
     Indication: GASTRIC DISORDER
     Dosage: UNK
     Route: 048
  5. LIBRAX [Concomitant]
     Indication: TRIGEMINAL NEURALGIA
     Dosage: UNK
     Route: 048
  6. TEGRETOL [Concomitant]
     Indication: TRIGEMINAL NEURALGIA
     Dosage: UNK
     Route: 048
  7. LEXAPRO [Concomitant]
     Indication: TRIGEMINAL NEURALGIA
     Dosage: UNK
     Route: 048
  8. SERC [Concomitant]
     Indication: TRIGEMINAL NEURALGIA
     Dosage: 24 MG, UNK
     Route: 048

REACTIONS (4)
  - OVERWEIGHT [None]
  - INSOMNIA [None]
  - WEIGHT INCREASED [None]
  - FLUID RETENTION [None]
